FAERS Safety Report 21620730 (Version 1)
Quarter: 2022Q4

REPORT INFORMATION
  Report Type: Spontaneous
  Country: US (occurrence: None)
  Receive Date: 20221118
  Receipt Date: 20221118
  Transmission Date: 20230113
  Serious: No
  Sender: FDA-Public Use
  Company Number: None

PATIENT
  Sex: Female
  Weight: 98.8 kg

DRUGS (2)
  1. CARBOPLATIN [Suspect]
     Active Substance: CARBOPLATIN
     Dates: end: 20221031
  2. TAXOL [Suspect]
     Active Substance: PACLITAXEL
     Dates: end: 20221031

REACTIONS (14)
  - Blindness unilateral [None]
  - Eye pain [None]
  - Ocular hyperaemia [None]
  - Visual impairment [None]
  - Ocular discomfort [None]
  - Eye movement disorder [None]
  - Mydriasis [None]
  - Pupillary light reflex tests abnormal [None]
  - Corneal opacity [None]
  - Conjunctival hyperaemia [None]
  - Eye pain [None]
  - Angle closure glaucoma [None]
  - Loss of personal independence in daily activities [None]
  - Cataract [None]

NARRATIVE: CASE EVENT DATE: 20221103
